FAERS Safety Report 7349272-4 (Version None)
Quarter: 2011Q1

REPORT INFORMATION
  Report Type: 
  Country: None (occurrence: None)
  Receive Date: 20110314
  Receipt Date: 20110228
  Transmission Date: 20110831
  Serious: No
  Sender: FDA-Public Use
  Company Number: JP-MYLANLABS-2011S1003940

PATIENT
  Age: 78 Year
  Sex: Female

DRUGS (10)
  1. TRAMAL [Suspect]
     Dates: start: 20110110, end: 20110112
  2. TRAMAL [Suspect]
     Indication: PAIN
     Dates: start: 20110107, end: 20110109
  3. GRANISETRON HCL [Concomitant]
  4. CARBOPLATIN [Suspect]
     Dates: start: 20110112
  5. CARBOPLATIN [Suspect]
     Dates: start: 20101124
  6. PACLITAXEL [Suspect]
     Dates: start: 20110112
  7. ZANTAC [Concomitant]
  8. CARBOPLATIN [Suspect]
     Dates: start: 20101215
  9. PACLITAXEL [Suspect]
     Indication: UTERINE CANCER
     Dates: start: 20101124
  10. PACLITAXEL [Suspect]
     Dates: start: 20101215

REACTIONS (1)
  - COGNITIVE DISORDER [None]
